FAERS Safety Report 9191700 (Version 1)
Quarter: 2013Q1

REPORT INFORMATION
  Report Type: Spontaneous
  Country: IT (occurrence: IT)
  Receive Date: 20130326
  Receipt Date: 20130326
  Transmission Date: 20140127
  Serious: Yes (Other)
  Sender: FDA-Public Use
  Company Number: IT-MYLANLABS-2013S1005955

PATIENT
  Age: 74 Year
  Sex: Male

DRUGS (6)
  1. CARVEDILOL [Suspect]
     Indication: CARDIAC FAILURE
     Route: 048
     Dates: start: 20120918, end: 20130108
  2. TRIATEC [Concomitant]
     Indication: HYPERTENSION
  3. LASIX [Concomitant]
     Indication: HYPERTENSION
  4. ALDACTONE [Concomitant]
     Indication: HYPERTENSION
  5. SIVASTIN [Concomitant]
     Indication: HYPERTENSION
  6. COUMADIN [Concomitant]
     Indication: PRODUCT USED FOR UNKNOWN INDICATION

REACTIONS (1)
  - Bronchostenosis [Recovering/Resolving]
